FAERS Safety Report 16252493 (Version 2)
Quarter: 2019Q2

REPORT INFORMATION
  Report Type: Spontaneous
  Country: GB (occurrence: GB)
  Receive Date: 20190429
  Receipt Date: 20190606
  Transmission Date: 20190711
  Serious: Yes (Death, Hospitalization)
  Sender: FDA-Public Use
  Company Number: GB-MYLANLABS-2019M1040129

PATIENT
  Age: 71 Year
  Sex: Female

DRUGS (5)
  1. GENTAMICIN. [Suspect]
     Active Substance: GENTAMICIN
     Indication: HIP ARTHROPLASTY
     Dosage: 120 MILLIGRAM, QD
     Route: 042
     Dates: start: 20180925, end: 20180925
  2. FENTANYL. [Concomitant]
     Active Substance: FENTANYL
     Indication: HIP ARTHROPLASTY
     Dosage: 100 MICROGRAM, QD
     Route: 042
     Dates: start: 20180925, end: 20180925
  3. TEICOPLANIN [Suspect]
     Active Substance: TEICOPLANIN
     Indication: HIP ARTHROPLASTY
     Dosage: 400 MILLIGRAM, QD
     Dates: start: 20180925, end: 20180925
  4. TRANEXAMIC ACID. [Suspect]
     Active Substance: TRANEXAMIC ACID
     Indication: HIP ARTHROPLASTY
     Dosage: UNK UNK, QD
     Dates: start: 20180925, end: 20180925
  5. PROPOFOL. [Concomitant]
     Active Substance: PROPOFOL
     Indication: HIP ARTHROPLASTY
     Dosage: 60 MILLIGRAM, QD
     Route: 042
     Dates: start: 20180925, end: 20180925

REACTIONS (1)
  - Anaphylactic shock [Fatal]

NARRATIVE: CASE EVENT DATE: 20180925
